FAERS Safety Report 4809136-4 (Version None)
Quarter: 2005Q4

REPORT INFORMATION
  Report Type: 
  Country: None (occurrence: None)
  Receive Date: 20051024
  Receipt Date: 20051024
  Transmission Date: 20060501
  Serious: Yes (Hospitalization)
  Sender: FDA-Public Use
  Company Number: None

PATIENT
  Sex: Male
  Weight: 77.1115 kg

DRUGS (12)
  1. REVLIMID [Suspect]
     Indication: MULTIPLE MYELOMA
     Dosage: 25 MG / ONCE / DAY
     Dates: start: 20050331
  2. DEXAMETHASONE TAB [Suspect]
     Indication: MULTIPLE MYELOMA
     Dosage: 5.40 MG PILLS/DAY
     Dates: start: 20050331
  3. BIAXIN [Suspect]
     Dosage: 500 MG ONCE /DAY
     Dates: start: 20050331
  4. BACTRIM [Concomitant]
  5. PRILOSEC [Concomitant]
  6. MYCELEX [Concomitant]
  7. DECADRON [Concomitant]
  8. ASPIRIN [Concomitant]
  9. M.V.I. [Concomitant]
  10. COLASE [Concomitant]
  11. LASIX [Concomitant]
  12. CELEXA [Concomitant]

REACTIONS (4)
  - ABDOMINAL PAIN LOWER [None]
  - HERNIA [None]
  - NAUSEA [None]
  - PANCYTOPENIA [None]
